FAERS Safety Report 20988951 (Version 1)
Quarter: 2022Q2

REPORT INFORMATION
  Report Type: Spontaneous
  Country: CN (occurrence: CN)
  Receive Date: 20220621
  Receipt Date: 20220621
  Transmission Date: 20220721
  Serious: Yes (Hospitalization, Other)
  Sender: FDA-Public Use
  Company Number: CN-GLAXOSMITHKLINE-CNCH2022APC019872

PATIENT

DRUGS (3)
  1. IBUPROFEN [Suspect]
     Active Substance: IBUPROFEN
     Indication: Nasopharyngitis
     Dosage: 2 DF, TID
     Route: 048
     Dates: start: 20220515, end: 20220517
  2. IBUPROFEN [Suspect]
     Active Substance: IBUPROFEN
     Indication: Asthenia
  3. IBUPROFEN [Suspect]
     Active Substance: IBUPROFEN
     Indication: Decreased appetite

REACTIONS (10)
  - Acute kidney injury [Recovering/Resolving]
  - Asthenia [Recovering/Resolving]
  - Decreased appetite [Recovering/Resolving]
  - Condition aggravated [Recovering/Resolving]
  - Marasmus [Recovering/Resolving]
  - Weight decreased [Recovering/Resolving]
  - Overdose [Unknown]
  - Drug ineffective for unapproved indication [Unknown]
  - Product use in unapproved indication [Unknown]
  - Contraindicated product administered [Unknown]

NARRATIVE: CASE EVENT DATE: 20220501
